FAERS Safety Report 5706963-6 (Version None)
Quarter: 2008Q2

REPORT INFORMATION
  Report Type: 
  Country: None (occurrence: None)
  Receive Date: 20080416
  Receipt Date: 20080410
  Transmission Date: 20081010
  Serious: Yes (Hospitalization, Other)
  Sender: FDA-Public Use
  Company Number: GB-BRISTOL-MYERS SQUIBB COMPANY-14147219

PATIENT
  Age: 51 Year
  Sex: Male

DRUGS (3)
  1. BARACLUDE [Suspect]
     Indication: HEPATITIS B VIRUS
     Route: 048
     Dates: start: 20080226, end: 20080319
  2. VIREAD [Suspect]
     Indication: HEPATITIS B VIRUS
     Route: 048
     Dates: start: 20080226, end: 20080319
  3. PROPANOL [Concomitant]
     Indication: PORTAL HYPERTENSION
     Route: 048

REACTIONS (5)
  - HEPATIC CIRRHOSIS [None]
  - PHARYNGOLARYNGEAL PAIN [None]
  - RASH MACULO-PAPULAR [None]
  - SEBORRHOEIC DERMATITIS [None]
  - TACHYCARDIA [None]
